FAERS Safety Report 4892338-9 (Version None)
Quarter: 2006Q1

REPORT INFORMATION
  Report Type: 
  Country: None (occurrence: None)
  Receive Date: 20060126
  Receipt Date: 20060123
  Transmission Date: 20060701
  Serious: Yes (Other)
  Sender: FDA-Public Use
  Company Number: US-GLAXOSMITHKLINE-A0590505A

PATIENT
  Sex: Male

DRUGS (1)
  1. ZOFRAN [Suspect]
     Route: 042

REACTIONS (1)
  - SYNCOPE VASOVAGAL [None]
